FAERS Safety Report 9737476 (Version 2)
Quarter: 2014Q1

REPORT INFORMATION
  Report Type: Spontaneous
  Country: US (occurrence: US)
  Receive Date: 20131206
  Receipt Date: 20140124
  Transmission Date: 20141002
  Serious: Yes (Hospitalization, Other)
  Sender: FDA-Public Use
  Company Number: US-GILEAD-2013-0089366

PATIENT
  Sex: Male

DRUGS (3)
  1. LETAIRIS [Suspect]
     Indication: PULMONARY ARTERIAL HYPERTENSION
     Dosage: 5 MG, QD
     Route: 048
     Dates: start: 20131111
  2. LETAIRIS [Suspect]
     Indication: LEFT VENTRICULAR FAILURE
  3. ADCIRCA [Concomitant]

REACTIONS (2)
  - Dialysis [Unknown]
  - Renal failure [Unknown]
